FAERS Safety Report 9746294 (Version 1)
Quarter: 2013Q4

REPORT INFORMATION
  Report Type: Spontaneous
  Country: JP (occurrence: None)
  Receive Date: 20131205
  Receipt Date: 20131205
  Transmission Date: 20140711
  Serious: Yes (Life-Threatening, Hospitalization)
  Sender: FDA-Public Use
  Company Number: 2013P1021342

PATIENT
  Age: 27 Year
  Sex: Female
  Weight: 68.8 kg

DRUGS (6)
  1. METHIMAZOLE [Suspect]
     Indication: BASEDOW^S DISEASE
  2. LEVOFLOXACIN [Concomitant]
  3. SODIUM VALPROATE [Concomitant]
  4. RISPERIDONE [Concomitant]
  5. LORAZEPAM [Concomitant]
  6. ESTAZOLAM [Concomitant]

REACTIONS (9)
  - Agranulocytosis [None]
  - Blood lactate dehydrogenase increased [None]
  - Sinus tachycardia [None]
  - Blood pressure decreased [None]
  - White blood cell count decreased [None]
  - Dyspnoea [None]
  - Drooling [None]
  - Pneumococcal sepsis [None]
  - Upper airway obstruction [None]
